FAERS Safety Report 8784828 (Version 1)
Quarter: 2012Q4

REPORT INFORMATION
  Report Type: Spontaneous
  Country: KP (occurrence: None)
  Receive Date: 20120831
  Receipt Date: 20120831
  Transmission Date: 20130627
  Serious: Yes (Other)
  Sender: FDA-Public Use
  Company Number: DSA_59169_2012

PATIENT
  Sex: Female

DRUGS (3)
  1. FLUOROURACIL (FLUOROURACIL) [Suspect]
     Indication: CERVIX CARCINOMA
     Dosage: 1000 mg/m2 per day on days 1 to 5; every three weeks intravenous (not otherwise specified)
  2. CISPLATIN [Suspect]
     Indication: CERVIX CARCINOMA
     Dosage: DF; every 3 weeks intravenous (not otherwise specified)
  3. THERAPEUTIC RADIOPHARMACEUTICALS [Suspect]
     Indication: CERVIX CARCINOMA
     Dosage: DF; every three weeks

REACTIONS (1)
  - Leukopenia [None]
